FAERS Safety Report 12762269 (Version 1)
Quarter: 2016Q3

REPORT INFORMATION
  Report Type: Spontaneous
  Country: US (occurrence: US)
  Receive Date: 20160920
  Receipt Date: 20160920
  Transmission Date: 20161109
  Serious: No
  Sender: FDA-Public Use
  Company Number: US-GUERBET LLC-1057471

PATIENT
  Sex: Female

DRUGS (1)
  1. CONRAY 30 [Suspect]
     Active Substance: IOTHALAMATE MEGLUMINE
     Indication: PRODUCT USED FOR UNKNOWN INDICATION
     Dates: start: 20160203, end: 20160203

REACTIONS (2)
  - Accidental exposure to product [Not Recovered/Not Resolved]
  - Eye disorder [Not Recovered/Not Resolved]

NARRATIVE: CASE EVENT DATE: 20160203
